FAERS Safety Report 16523734 (Version 1)
Quarter: 2019Q3

REPORT INFORMATION
  Report Type: Spontaneous
  Country: DE (occurrence: DE)
  Receive Date: 20190702
  Receipt Date: 20190702
  Transmission Date: 20191004
  Serious: Yes (Other)
  Sender: FDA-Public Use
  Company Number: DE-MYLANLABS-2019M1061491

PATIENT
  Age: 48 Year
  Sex: Female
  Weight: 64 kg

DRUGS (6)
  1. CORTIMENT                          /00614601/ [Concomitant]
     Dosage: 9 MILLIGRAM
     Dates: start: 20170105
  2. MIRENA [Concomitant]
     Active Substance: LEVONORGESTREL
     Indication: CONTRACEPTION
     Dosage: UNK
  3. DECORTIN [Concomitant]
     Active Substance: PREDNISONE
     Indication: CROHN^S DISEASE
     Dosage: UNK
     Dates: start: 201212
  4. MIRENA [Concomitant]
     Active Substance: LEVONORGESTREL
     Indication: MENSTRUAL DISORDER
  5. CORTIMENT                          /00614601/ [Concomitant]
     Dosage: 18 MILLIGRAM
     Dates: end: 20170104
  6. AZATHIOPRINE. [Suspect]
     Active Substance: AZATHIOPRINE
     Indication: CROHN^S DISEASE
     Dosage: EINNAHME, UM DAS KORTISON AUSZUSCHLEICHEN
     Dates: start: 20161112

REACTIONS (9)
  - Asthenia [Recovering/Resolving]
  - Condition aggravated [Recovering/Resolving]
  - Abdominal pain upper [Recovering/Resolving]
  - Malaise [Recovering/Resolving]
  - Urinary retention [Recovering/Resolving]
  - Tremor [Recovering/Resolving]
  - Micturition disorder [Recovering/Resolving]
  - Cystitis noninfective [Recovering/Resolving]
  - Urinary tract infection [Recovering/Resolving]

NARRATIVE: CASE EVENT DATE: 2016
